FAERS Safety Report 6736149-8 (Version None)
Quarter: 2010Q2

REPORT INFORMATION
  Report Type: 
  Country: None (occurrence: None)
  Receive Date: 20100521
  Receipt Date: 20100512
  Transmission Date: 20101027
  Serious: Yes (Hospitalization)
  Sender: FDA-Public Use
  Company Number: US-SANOFI-AVENTIS-2010SA021259

PATIENT
  Sex: Male

DRUGS (8)
  1. MULTAQ [Suspect]
     Indication: ATRIAL FIBRILLATION
     Route: 048
     Dates: start: 20100115, end: 20100226
  2. UROXATRAL [Suspect]
     Route: 048
     Dates: start: 20091101
  3. UROXATRAL [Suspect]
     Indication: BENIGN PROSTATIC HYPERPLASIA
     Route: 048
     Dates: start: 20091101
  4. FINASTERIDE [Suspect]
     Route: 065
     Dates: start: 20091101
  5. FINASTERIDE [Suspect]
     Indication: BENIGN PROSTATIC HYPERPLASIA
     Route: 065
     Dates: start: 20091101
  6. COUMADIN [Concomitant]
     Route: 048
     Dates: start: 20100301
  7. POTASSIUM CHLORIDE [Concomitant]
     Dates: start: 20090901
  8. WELCHOL [Concomitant]
     Route: 048
     Dates: start: 20090901

REACTIONS (2)
  - ATRIAL FIBRILLATION [None]
  - DRUG INTERACTION [None]
